FAERS Safety Report 6575516-2 (Version None)
Quarter: 2010Q1

REPORT INFORMATION
  Report Type: 
  Country: None (occurrence: None)
  Receive Date: 20100209
  Receipt Date: 20100128
  Transmission Date: 20100710
  Serious: Yes (Life-Threatening)
  Sender: FDA-Public Use
  Company Number: JP-PFIZER INC-2009286998

PATIENT
  Age: 90 Year
  Sex: Female

DRUGS (9)
  1. AMLODIPINE [Suspect]
     Dosage: 5 MG, DAILY
     Route: 048
     Dates: end: 20090716
  2. AMLODIPINE [Suspect]
     Dosage: UNK
     Route: 048
     Dates: start: 20090802, end: 20090920
  3. TAKEPRON [Suspect]
     Indication: REFLUX OESOPHAGITIS
     Dosage: 15 MG, DAILY
     Route: 048
     Dates: end: 20090716
  4. TAKEPRON [Suspect]
     Dosage: 15 MG, DAILY
     Route: 048
     Dates: start: 20090802, end: 20090920
  5. NEUROVITAN [Concomitant]
     Dosage: 3 DF, DAILY
     Route: 048
     Dates: start: 20090802
  6. THYRADIN S [Concomitant]
     Dosage: 50 UG, DAILY
     Route: 048
     Dates: start: 20090821
  7. CORTRIL [Concomitant]
     Dosage: 10 MG, DAILY
     Route: 048
     Dates: start: 20090821
  8. VALSARTAN [Concomitant]
     Dosage: 40 MG, DAILY
     Route: 048
  9. FAMOTIDINE [Concomitant]
     Dosage: 10 MG, DAILY
     Route: 048

REACTIONS (1)
  - HAEMORRHAGE SUBCUTANEOUS [None]
